FAERS Safety Report 9254115 (Version 2)
Quarter: 2013Q2

REPORT INFORMATION
  Report Type: Spontaneous
  Country: IT (occurrence: None)
  Receive Date: 20130419
  Receipt Date: 20130424
  Transmission Date: 20140414
  Serious: No
  Sender: FDA-Public Use
  Company Number: 1304ITA004211

PATIENT
  Age: 4 Year
  Sex: Female

DRUGS (1)
  1. ISOCEF [Suspect]
     Indication: COUGH
     Route: 048
     Dates: start: 20130206, end: 20130206

REACTIONS (1)
  - Rash [None]
